FAERS Safety Report 18035884 (Version 1)
Quarter: 2020Q3

REPORT INFORMATION
  Report Type: Report from Study
  Country: US (occurrence: US)
  Receive Date: 20200717
  Receipt Date: 20200717
  Transmission Date: 20201103
  Serious: Yes (Congenital Anomaly, Other)
  Sender: FDA-Public Use
  Company Number: US-UCBSA-2020027961

PATIENT

DRUGS (1)
  1. LEVETIRACETAM. [Suspect]
     Active Substance: LEVETIRACETAM
     Indication: SEIZURE
     Dosage: MEDIAN DOSE OF 1500 MILLIGRAM
     Route: 064

REACTIONS (6)
  - Hypoplastic left heart syndrome [Unknown]
  - Atrial septal defect [Unknown]
  - Maternal exposure during pregnancy [Unknown]
  - Ventricular septal defect [Unknown]
  - Buried penis syndrome [Unknown]
  - Cryptorchism [Unknown]
